FAERS Safety Report 18324639 (Version 1)
Quarter: 2020Q3

REPORT INFORMATION
  Report Type: Spontaneous
  Country: US (occurrence: US)
  Receive Date: 20200929
  Receipt Date: 20200929
  Transmission Date: 20201103
  Serious: No
  Sender: FDA-Public Use
  Company Number: US-HORIZON-TEP-2222-2020

PATIENT
  Age: 20 Year
  Sex: Female

DRUGS (2)
  1. TEPEZZA [Suspect]
     Active Substance: TEPROTUMUMAB-TRBW
     Indication: TOXIC GOITRE
     Dosage: 1300MG (27.3ML) Q3WEEKS
     Route: 042
     Dates: start: 20200810
  2. VITAMIN D2 [Concomitant]
     Active Substance: ERGOCALCIFEROL

REACTIONS (2)
  - Flushing [Recovered/Resolved]
  - Dyspnoea [Recovered/Resolved]
